FAERS Safety Report 23634927 (Version 1)
Quarter: 2024Q1

REPORT INFORMATION
  Report Type: Spontaneous
  Country: JP (occurrence: None)
  Receive Date: 20240315
  Receipt Date: 20240315
  Transmission Date: 20240410
  Serious: Yes (Other)
  Sender: FDA-Public Use
  Company Number: 2024A060327

PATIENT

DRUGS (2)
  1. IMFINZI [Suspect]
     Active Substance: DURVALUMAB
     Indication: Small cell lung cancer
     Dosage: DOSE UNKNOWN
     Route: 041
  2. ETOPOSIDE [Concomitant]
     Active Substance: ETOPOSIDE
     Indication: Small cell lung cancer
     Dosage: DOSE UNKNOWN, ON THE FIRST, SECOND AND THIRD DAYS OF EACH CYCLE

REACTIONS (16)
  - Febrile neutropenia [Unknown]
  - Malignant neoplasm progression [Unknown]
  - Pneumonitis [Unknown]
  - Arthritis [Unknown]
  - Blood creatine phosphokinase increased [Unknown]
  - White blood cell count decreased [Unknown]
  - Neutrophil count decreased [Unknown]
  - Platelet count decreased [Unknown]
  - Anaemia [Unknown]
  - Malaise [Unknown]
  - Decreased appetite [Unknown]
  - Nausea [Unknown]
  - Hyponatraemia [Unknown]
  - Skin disorder [Unknown]
  - Infusion related reaction [Unknown]
  - Hypothyroidism [Unknown]
